FAERS Safety Report 8777371 (Version 3)
Quarter: 2012Q4

REPORT INFORMATION
  Report Type: 
  Country: JP (occurrence: JP)
  Receive Date: 20120911
  Receipt Date: 20121102
  Transmission Date: 20130627
  Serious: Yes (Other)
  Sender: FDA-Public Use
  Company Number: JP-PFIZER INC-2012221586

PATIENT
  Age: 78 Year
  Sex: Female
  Weight: 39 kg

DRUGS (9)
  1. JZOLOFT [Suspect]
     Indication: PANIC DISORDER
     Dosage: 25 mg, 1x/day
     Route: 048
     Dates: start: 20120806, end: 20120825
  2. JZOLOFT [Suspect]
     Dosage: 25 mg, UNK
     Route: 048
     Dates: start: 20120902, end: 20120904
  3. MAG-LAX [Concomitant]
     Indication: CONSTIPATION
     Dosage: 330 mg, 3x/day
     Route: 048
  4. PLAVIX [Concomitant]
     Indication: PREVENTION
     Dosage: 50 mg, 1x/day
     Route: 048
  5. PROTECADIN [Concomitant]
     Indication: CHRONIC GASTRITIS
     Dosage: 10 mg, 1x/day
     Route: 048
  6. PURSENNID [Concomitant]
     Indication: CONSTIPATION
     Dosage: UNK
     Route: 048
  7. NEUROTROPIN [Concomitant]
     Indication: OSTEOARTHRITIS
     Dosage: 4 units, 2x/day
     Route: 048
  8. EVISTA [Concomitant]
     Indication: OSTEOPOROSIS
     Dosage: 60 mg, 1x/day
     Route: 048
  9. OPALMON [Concomitant]
     Indication: VASCULAR INSUFFICIENCY
     Dosage: 5 ug, 2x/day
     Route: 048

REACTIONS (3)
  - Hyponatraemia [Recovering/Resolving]
  - Periodontitis [Recovering/Resolving]
  - Nocturia [Recovered/Resolved]
